FAERS Safety Report 14771713 (Version 1)
Quarter: 2018Q2

REPORT INFORMATION
  Report Type: Spontaneous
  Country: US (occurrence: US)
  Receive Date: 20180417
  Receipt Date: 20180417
  Transmission Date: 20180711
  Serious: No
  Sender: FDA-Public Use
  Company Number: US-ALLERGAN-1769102US

PATIENT
  Age: 9 Decade
  Sex: Female

DRUGS (2)
  1. LATISSE [Suspect]
     Active Substance: BIMATOPROST
     Indication: GROWTH OF EYELASHES
  2. LATISSE [Suspect]
     Active Substance: BIMATOPROST
     Indication: MADAROSIS
     Dosage: UNK
     Route: 061
     Dates: start: 20171101, end: 20171111

REACTIONS (1)
  - Drug ineffective [Unknown]

NARRATIVE: CASE EVENT DATE: 201711
